FAERS Safety Report 7285169-6 (Version None)
Quarter: 2011Q1

REPORT INFORMATION
  Report Type: 
  Country: None (occurrence: None)
  Receive Date: 20110210
  Receipt Date: 20110131
  Transmission Date: 20110831
  Serious: Yes (Other)
  Sender: FDA-Public Use
  Company Number: FR-JNJFOC-20110201231

PATIENT
  Age: 61 Year
  Sex: Female

DRUGS (3)
  1. DAKTARIN [Suspect]
     Indication: ILL-DEFINED DISORDER
     Dosage: 3 TABLETS DAILY
     Route: 065
  2. DAKTARIN [Suspect]
     Route: 065
  3. SINTROM [Interacting]
     Indication: ANXIETY
     Route: 065

REACTIONS (11)
  - ABDOMINAL PAIN [None]
  - KAOLIN CEPHALIN CLOTTING TIME PROLONGED [None]
  - PROTHROMBIN LEVEL ABNORMAL [None]
  - HAEMATURIA [None]
  - HAEMORRHAGIC DISORDER [None]
  - DRUG INTERACTION [None]
  - RECTAL HAEMORRHAGE [None]
  - ECCHYMOSIS [None]
  - ANAEMIA [None]
  - HAEMATOMA [None]
  - RENAL COLIC [None]
